FAERS Safety Report 12575874 (Version 1)
Quarter: 2016Q3

REPORT INFORMATION
  Report Type: Spontaneous
  Country: US (occurrence: US)
  Receive Date: 20160720
  Receipt Date: 20160720
  Transmission Date: 20161109
  Serious: No
  Sender: FDA-Public Use
  Company Number: US-BAYER-2016-140944

PATIENT
  Age: 83 Year
  Sex: Female
  Weight: 40.82 kg

DRUGS (1)
  1. ALEVE [Suspect]
     Active Substance: NAPROXEN SODIUM
     Indication: ARTHRITIS
     Dosage: 1 DF, BID

REACTIONS (2)
  - Device ineffective [None]
  - Product use issue [None]

NARRATIVE: CASE EVENT DATE: 20160715
